FAERS Safety Report 15612393 (Version 1)
Quarter: 2018Q4

REPORT INFORMATION
  Report Type: Spontaneous
  Country: FR (occurrence: FR)
  Receive Date: 20181113
  Receipt Date: 20181113
  Transmission Date: 20190205
  Serious: Yes (Death, Other)
  Sender: FDA-Public Use
  Company Number: FR-009507513-1811FRA003458

PATIENT
  Age: 35 Year
  Sex: Male

DRUGS (2)
  1. AMBISOME [Concomitant]
     Active Substance: AMPHOTERICIN B
     Indication: MUCORMYCOSIS
     Dosage: UNK
     Dates: start: 20181030, end: 2018
  2. NOXAFIL [Suspect]
     Active Substance: POSACONAZOLE
     Indication: MUCORMYCOSIS
     Dosage: UNK
     Route: 042
     Dates: start: 20181101, end: 201811

REACTIONS (2)
  - Off label use [Unknown]
  - Mucormycosis [Fatal]

NARRATIVE: CASE EVENT DATE: 201811
